FAERS Safety Report 9221891 (Version 2)
Quarter: 2013Q2

REPORT INFORMATION
  Report Type: Spontaneous
  Country: MA (occurrence: MA)
  Receive Date: 20130410
  Receipt Date: 20130422
  Transmission Date: 20140414
  Serious: Yes (Life-Threatening, Hospitalization)
  Sender: FDA-Public Use
  Company Number: MA-JNJFOC-20130402160

PATIENT
  Age: 19 Year
  Sex: Male
  Weight: 50 kg

DRUGS (4)
  1. REMICADE [Suspect]
     Indication: RHEUMATOID ARTHRITIS
     Dosage: 3RD INFUSION
     Route: 042
  2. REMICADE [Suspect]
     Indication: RHEUMATOID ARTHRITIS
     Route: 042
  3. REMICADE [Suspect]
     Indication: CROHN^S DISEASE
     Dosage: 3RD INFUSION
     Route: 042
  4. REMICADE [Suspect]
     Indication: CROHN^S DISEASE
     Route: 042

REACTIONS (4)
  - Pulmonary embolism [Recovering/Resolving]
  - Hypoalbuminaemia [Unknown]
  - Tachycardia [Unknown]
  - Dyspnoea [Unknown]
